FAERS Safety Report 18699771 (Version 2)
Quarter: 2021Q1

REPORT INFORMATION
  Report Type: Spontaneous
  Country: RO (occurrence: RO)
  Receive Date: 20210104
  Receipt Date: 20210204
  Transmission Date: 20210419
  Serious: No
  Sender: FDA-Public Use
  Company Number: RO-JNJFOC-20201243884

PATIENT

DRUGS (3)
  1. RISPOLEPT [Suspect]
     Active Substance: RISPERIDONE
  2. RISPOLEPT [Suspect]
     Active Substance: RISPERIDONE
     Indication: PRODUCT USED FOR UNKNOWN INDICATION
     Dosage: STRENGTH: 1.00 MG/ML
     Route: 048
  3. RISPOLEPT [Suspect]
     Active Substance: RISPERIDONE

REACTIONS (1)
  - Product packaging quantity issue [Unknown]
